FAERS Safety Report 5148281-3 (Version None)
Quarter: 2006Q4

REPORT INFORMATION
  Report Type: 
  Country: None (occurrence: None)
  Receive Date: 20061107
  Receipt Date: 20061026
  Transmission Date: 20070319
  Serious: Yes (Hospitalization)
  Sender: FDA-Public Use
  Company Number: 2006-149741-NL

PATIENT
  Age: 91 Year
  Sex: Female

DRUGS (20)
  1. MIRTAZAPINE [Suspect]
     Dosage: 30 MG ORAL
     Route: 048
     Dates: start: 20061005
  2. ESTRADIOL INJ [Concomitant]
  3. METOPROLOL SUCCINATE [Concomitant]
  4. ALENDRONATE SODIUM [Concomitant]
  5. CETIRIZINE HCL [Concomitant]
  6. OMEPRAZOLE [Concomitant]
  7. GLYCERYL TRINITRATE [Concomitant]
  8. STERCULIA URENS [Concomitant]
  9. WARFARIN SODIUM [Concomitant]
  10. OXAZEPAM [Concomitant]
  11. MITRAZEPAM [Concomitant]
  12. CROMOLYN SODIUM [Concomitant]
  13. FUROSEMIDE [Concomitant]
  14. SPIRONOLACTONE [Concomitant]
  15. PREDNISOLONE [Concomitant]
  16. ISOSORBIDE MONONITRATE [Concomitant]
  17. POLYVINYL ALCOHOL [Concomitant]
  18. CALCIUM CARBONATE W/COLECALCIFEROL [Concomitant]
  19. ENALAPRIL MALEATE [Suspect]
     Dosage: 10 MG
     Route: 048
     Dates: start: 20061005
  20. DIGOXIN [Suspect]
     Dosage: 0.5 MG
     Route: 048
     Dates: start: 20060825

REACTIONS (10)
  - ASTHENIA [None]
  - ATRIAL FIBRILLATION [None]
  - BEDRIDDEN [None]
  - CARDIAC FAILURE [None]
  - DIARRHOEA [None]
  - HYPONATRAEMIA [None]
  - MALAISE [None]
  - NAUSEA [None]
  - RENAL FAILURE [None]
  - VOMITING [None]
